FAERS Safety Report 16702869 (Version 4)
Quarter: 2019Q3

REPORT INFORMATION
  Report Type: Spontaneous
  Country: US (occurrence: US)
  Receive Date: 20190814
  Receipt Date: 20190831
  Transmission Date: 20191004
  Serious: Yes (Death, Other)
  Sender: FDA-Public Use
  Company Number: US-UNITED THERAPEUTICS-UNT-2019-013513

PATIENT
  Age: 5 Year
  Sex: Female

DRUGS (2)
  1. REMODULIN [Suspect]
     Active Substance: TREPROSTINIL
     Indication: PULMONARY ARTERIAL HYPERTENSION
     Dosage: 0.101 ?G/KG, CONTINUING
     Route: 058
     Dates: start: 20160303
  2. REMODULIN [Suspect]
     Active Substance: TREPROSTINIL
     Dosage: 0.200 ?G/KG, CONTINUING
     Route: 058

REACTIONS (3)
  - Pulmonary hypertensive crisis [Fatal]
  - Sepsis [Fatal]
  - Pulmonary haemorrhage [Fatal]

NARRATIVE: CASE EVENT DATE: 201908
